FAERS Safety Report 12327832 (Version 1)
Quarter: 2016Q2

REPORT INFORMATION
  Report Type: Spontaneous
  Country: US (occurrence: US)
  Receive Date: 20160503
  Receipt Date: 20160503
  Transmission Date: 20160815
  Serious: Yes (Other)
  Sender: FDA-Public Use
  Company Number: US-DSJP-DSU-2016-115145

PATIENT

DRUGS (1)
  1. BENICAR [Suspect]
     Active Substance: OLMESARTAN MEDOXOMIL
     Indication: PRODUCT USED FOR UNKNOWN INDICATION
     Dosage: UNK
     Dates: start: 2013

REACTIONS (4)
  - Irritable bowel syndrome [Unknown]
  - Renal injury [Unknown]
  - Malabsorption [Unknown]
  - Rectal haemorrhage [Unknown]
